FAERS Safety Report 7431157-6 (Version None)
Quarter: 2011Q2

REPORT INFORMATION
  Report Type: 
  Country: None (occurrence: None)
  Receive Date: 20110421
  Receipt Date: 20110411
  Transmission Date: 20111010
  Serious: Yes (Hospitalization)
  Sender: FDA-Public Use
  Company Number: US-WATSON-2011-05021

PATIENT
  Age: 83 Year
  Sex: Male

DRUGS (4)
  1. PROPAFENONE HCL [Suspect]
     Dosage: 150 MG, TID
     Route: 048
     Dates: start: 20100420, end: 20110221
  2. NORVASC [Concomitant]
     Indication: BLOOD PRESSURE
     Dosage: UNK
     Route: 048
  3. PROPAFENONE HCL [Suspect]
     Indication: ATRIAL FIBRILLATION
     Dosage: 150 MG, TID
     Route: 048
     Dates: start: 20110222, end: 20110405
  4. COUMADIN [Concomitant]
     Indication: PRODUCT USED FOR UNKNOWN INDICATION
     Dosage: UNK
     Route: 048

REACTIONS (24)
  - DRUG LEVEL INCREASED [None]
  - PRODUCT CONTAMINATION [None]
  - PROTHROMBIN LEVEL ABNORMAL [None]
  - MUSCLE DISORDER [None]
  - MUSCLE TWITCHING [None]
  - JAW DISORDER [None]
  - TARDIVE DYSKINESIA [None]
  - FATIGUE [None]
  - UNRESPONSIVE TO STIMULI [None]
  - SPEECH DISORDER [None]
  - MUSCULAR WEAKNESS [None]
  - BRUDZINSKI'S SIGN [None]
  - PYREXIA [None]
  - DRUG SCREEN POSITIVE [None]
  - COMA [None]
  - DYSKINESIA [None]
  - LARYNGOSPASM [None]
  - HERPES ZOSTER [None]
  - METABOLIC ENCEPHALOPATHY [None]
  - DRY MOUTH [None]
  - OVERDOSE [None]
  - MUSCLE SPASMS [None]
  - PROTHROMBIN TIME SHORTENED [None]
  - FACIAL SPASM [None]
